FAERS Safety Report 7302742-7 (Version None)
Quarter: 2011Q1

REPORT INFORMATION
  Report Type: 
  Country: None (occurrence: None)
  Receive Date: 20110218
  Receipt Date: 20110204
  Transmission Date: 20110831
  Serious: Yes (Other)
  Sender: FDA-Public Use
  Company Number: GB-GENENTECH-313837

PATIENT
  Sex: Female

DRUGS (2)
  1. XOLAIR [Suspect]
     Dosage: 150 MG, Q2W
     Route: 058
  2. XOLAIR [Suspect]
     Indication: ASTHMA
     Dosage: 300 MG, Q2W
     Route: 058

REACTIONS (1)
  - ARTHROPATHY [None]
